FAERS Safety Report 9787340 (Version 3)
Quarter: 2015Q3

REPORT INFORMATION
  Report Type: Report from Study
  Country: BR (occurrence: BR)
  Receive Date: 20131230
  Receipt Date: 20150717
  Transmission Date: 20151125
  Serious: Yes (Other)
  Sender: FDA-Public Use
  Company Number: BR-BIOGENIDEC-2013BI123755

PATIENT
  Age: 55 Year
  Sex: Female

DRUGS (4)
  1. LEVOTHYROXINE. [Concomitant]
     Active Substance: LEVOTHYROXINE
     Dates: start: 2006
  2. WARFARIN [Concomitant]
     Active Substance: WARFARIN
     Dates: start: 2013
  3. AVONEX [Suspect]
     Active Substance: INTERFERON BETA-1A
     Indication: MULTIPLE SCLEROSIS
     Route: 030
     Dates: start: 20020402, end: 20121005
  4. AZATHIOPRINE. [Concomitant]
     Active Substance: AZATHIOPRINE

REACTIONS (2)
  - Pulmonary tuberculosis [Recovered/Resolved]
  - Cardiac operation [Unknown]

NARRATIVE: CASE EVENT DATE: 201210
